FAERS Safety Report 7827699-1 (Version None)
Quarter: 2011Q4

REPORT INFORMATION
  Report Type: 
  Country: None (occurrence: None)
  Receive Date: 20111020
  Receipt Date: 20111012
  Transmission Date: 20120403
  Serious: Yes (Hospitalization, Other)
  Sender: FDA-Public Use
  Company Number: JP-JNJFOC-20110701773

PATIENT
  Sex: Male
  Weight: 22.23 kg

DRUGS (25)
  1. VANCOMYCIN HCL [Concomitant]
     Indication: PNEUMONIA STAPHYLOCOCCAL
     Route: 041
     Dates: start: 20110630, end: 20110707
  2. JANUVIA [Concomitant]
     Indication: DIABETES MELLITUS
     Route: 048
     Dates: start: 20110603
  3. GARENOXACIN MESYLATE [Concomitant]
     Indication: PNEUMONIA
     Route: 048
     Dates: start: 20110616, end: 20110622
  4. TORSEMIDE [Concomitant]
     Route: 048
     Dates: start: 20110625
  5. HANP [Concomitant]
     Indication: COR PULMONALE
     Route: 041
     Dates: start: 20110624, end: 20110629
  6. OMEGACIN [Concomitant]
     Indication: PNEUMONIA
     Route: 041
     Dates: start: 20110625, end: 20110630
  7. VANCOMYCIN HYCHLORIDE [Concomitant]
     Indication: PSEUDOMEMBRANOUS COLITIS
     Route: 048
     Dates: start: 20110701, end: 20110708
  8. ITRACONAZOLE [Suspect]
     Indication: FUNGAL INFECTION
     Route: 048
     Dates: start: 20110604, end: 20110624
  9. ITRACONAZOLE [Suspect]
     Indication: PULMONARY MYCOSIS
     Route: 048
     Dates: start: 20110604, end: 20110624
  10. SPIRIVA [Concomitant]
     Indication: CHRONIC OBSTRUCTIVE PULMONARY DISEASE
     Route: 055
     Dates: start: 20060302
  11. TORSEMIDE [Concomitant]
     Indication: CARDIAC FAILURE
     Route: 048
     Dates: start: 20110620, end: 20110624
  12. POTASSIUM-ASPARTATE [Concomitant]
     Indication: HYPOKALAEMIA
     Route: 048
     Dates: start: 20110609, end: 20110705
  13. ZOSYN [Concomitant]
     Indication: PNEUMONIA
     Route: 041
     Dates: start: 20110618, end: 20110624
  14. TORSEMIDE [Concomitant]
     Route: 048
     Dates: start: 20110625
  15. ITRACONAZOLE [Suspect]
     Indication: BRONCHOPULMONARY ASPERGILLOSIS
     Route: 048
     Dates: start: 20110604, end: 20110624
  16. MUCOSTA [Concomitant]
     Indication: GASTRIC CANCER
     Route: 048
  17. LASIX [Concomitant]
     Indication: COR PULMONALE
     Route: 042
     Dates: start: 20110618, end: 20110619
  18. VANCOMYCIN HYCHLORIDE [Concomitant]
     Indication: PNEUMONIA STAPHYLOCOCCAL
     Route: 048
     Dates: start: 20110701, end: 20110708
  19. VITAMEDIN [Concomitant]
     Indication: NUTRITIONAL SUPPORT
     Route: 041
     Dates: start: 20110630, end: 20110704
  20. LASIX [Concomitant]
     Indication: CARDIAC FAILURE
     Route: 042
     Dates: start: 20110618, end: 20110619
  21. HOKUNALIN [Concomitant]
     Indication: CHRONIC OBSTRUCTIVE PULMONARY DISEASE
     Route: 062
     Dates: start: 20070118
  22. HARNAL D [Concomitant]
     Indication: BENIGN PROSTATIC HYPERPLASIA
     Route: 048
     Dates: start: 20110520
  23. TORSEMIDE [Concomitant]
     Indication: COR PULMONALE
     Route: 048
     Dates: start: 20110620, end: 20110624
  24. HANP [Concomitant]
     Indication: CARDIAC FAILURE
     Route: 041
     Dates: start: 20110624, end: 20110629
  25. TPN ELECTROLYTES IN PLASTIC CONTAINER [Concomitant]
     Indication: NUTRITIONAL SUPPORT
     Route: 041
     Dates: start: 20110630, end: 20110704

REACTIONS (5)
  - HYPOKALAEMIA [None]
  - DECREASED APPETITE [None]
  - GASTROENTERITIS STAPHYLOCOCCAL [None]
  - PNEUMONIA STAPHYLOCOCCAL [None]
  - CARDIAC FAILURE CONGESTIVE [None]
